FAERS Safety Report 5751962-1 (Version None)
Quarter: 2008Q2

REPORT INFORMATION
  Report Type: 
  Country: None (occurrence: None)
  Receive Date: 20080529
  Receipt Date: 20080519
  Transmission Date: 20081010
  Serious: Yes (Other)
  Sender: FDA-Public Use
  Company Number: DE-AMGEN-UK274288

PATIENT
  Sex: Male
  Weight: 78 kg

DRUGS (5)
  1. NEUPOGEN [Suspect]
     Indication: PERIPHERAL BLOOD STEM CELL APHERESIS
     Route: 058
     Dates: start: 20071116, end: 20071120
  2. ZOLOFT [Concomitant]
     Route: 065
     Dates: start: 19970101
  3. PROSCAR [Concomitant]
     Route: 065
     Dates: start: 19970101
  4. TAMSULOSIN HCL [Concomitant]
     Route: 065
     Dates: start: 19970101
  5. DIPIPERON [Concomitant]
     Route: 065
     Dates: start: 19970101

REACTIONS (3)
  - BONE PAIN [None]
  - DISTURBANCE IN ATTENTION [None]
  - HEADACHE [None]
